FAERS Safety Report 7353629-5 (Version None)
Quarter: 2011Q1

REPORT INFORMATION
  Report Type: 
  Country: None (occurrence: None)
  Receive Date: 20110303
  Receipt Date: 20100514
  Transmission Date: 20110831
  Serious: Yes (Hospitalization)
  Sender: FDA-Public Use
  Company Number: US-004479

PATIENT
  Age: 46 Year
  Sex: Male

DRUGS (2)
  1. ISOVUE-300 [Suspect]
     Indication: FLANK PAIN
     Dosage: 100ML ONCE INTRAVENOUS (NOT OTHERWISE SPECIFIED)
     Route: 042
     Dates: start: 20100511, end: 20100511
  2. ISOVUE-300 [Suspect]
     Indication: COMPUTERISED TOMOGRAM ABDOMEN
     Dosage: 100ML ONCE INTRAVENOUS (NOT OTHERWISE SPECIFIED)
     Route: 042
     Dates: start: 20100511, end: 20100511

REACTIONS (1)
  - ANAPHYLACTIC REACTION [None]
